FAERS Safety Report 6293288-6 (Version None)
Quarter: 2009Q3

REPORT INFORMATION
  Report Type: 
  Country: None (occurrence: None)
  Receive Date: 20090731
  Receipt Date: 20090721
  Transmission Date: 20100115
  Serious: Yes (Life-Threatening, Other)
  Sender: FDA-Public Use
  Company Number: CA-GENENTECH-287578

PATIENT
  Age: 75 Year
  Sex: Male

DRUGS (1)
  1. TNKASE [Suspect]
     Indication: ACUTE MYOCARDIAL INFARCTION
     Dosage: UNK,  UNK

REACTIONS (4)
  - ASTHENIA [None]
  - CORONARY ARTERY STENOSIS [None]
  - DIZZINESS [None]
  - VENTRICULAR FIBRILLATION [None]
